FAERS Safety Report 18431516 (Version 1)
Quarter: 2020Q4

REPORT INFORMATION
  Report Type: Spontaneous
  Country: US (occurrence: US)
  Receive Date: 20201027
  Receipt Date: 20201027
  Transmission Date: 20210114
  Serious: Yes (Hospitalization)
  Sender: FDA-Public Use
  Company Number: None

PATIENT
  Age: 12 Year
  Sex: Male
  Weight: 43.4 kg

DRUGS (7)
  1. VEDOLIZUMAB 300MG [Suspect]
     Active Substance: VEDOLIZUMAB
  2. OMEPRAZOLE 20MG [Concomitant]
     Active Substance: OMEPRAZOLE
  3. METHOTREXATE. [Suspect]
     Active Substance: METHOTREXATE
  4. FERROUS SULFATE. [Concomitant]
     Active Substance: FERROUS SULFATE
  5. FOLIC ACID 1MG [Concomitant]
     Active Substance: FOLIC ACID
  6. PEDIASURE [Concomitant]
     Active Substance: VITAMINS
  7. PREDNISONE 20MG [Concomitant]
     Active Substance: PREDNISONE

REACTIONS (5)
  - Disease progression [None]
  - Large intestinal stenosis [None]
  - Vomiting [None]
  - Abdominal pain [None]
  - Clostridium test positive [None]

NARRATIVE: CASE EVENT DATE: 20191001
